FAERS Safety Report 9077046 (Version 2)
Quarter: 2013Q1

REPORT INFORMATION
  Report Type: Spontaneous
  Country: BE (occurrence: BE)
  Receive Date: 20130130
  Receipt Date: 20130225
  Transmission Date: 20140127
  Serious: Yes (Hospitalization, Other)
  Sender: FDA-Public Use
  Company Number: BE-JNJFOC-20130112233

PATIENT
  Age: 6 Decade
  Sex: Male
  Weight: 80 kg

DRUGS (5)
  1. ZYTIGA [Suspect]
     Indication: PROSTATE CANCER
     Route: 048
     Dates: start: 20130109, end: 20130115
  2. ZYTIGA [Suspect]
     Indication: PROSTATE CANCER
     Route: 048
     Dates: start: 20121211, end: 20121226
  3. PREDNISONE [Concomitant]
     Route: 065
  4. XANAX [Concomitant]
     Dosage: 0.5 AS NECESSARY
     Route: 065
  5. XANAX [Concomitant]
     Dosage: 0.5 1X
     Route: 065

REACTIONS (11)
  - Renal failure [Recovering/Resolving]
  - Hepatic failure [Recovering/Resolving]
  - Atelectasis [Unknown]
  - Electrocardiogram QT prolonged [Unknown]
  - Hypocalcaemia [Unknown]
  - Cholecystitis chronic [Unknown]
  - Cholelithiasis [Unknown]
  - Anaemia [Unknown]
  - Hydronephrosis [Not Recovered/Not Resolved]
  - Hypertonic bladder [Unknown]
  - Pleural effusion [Not Recovered/Not Resolved]
